FAERS Safety Report 4465228-3 (Version None)
Quarter: 2004Q4

REPORT INFORMATION
  Report Type: 
  Country: None (occurrence: None)
  Receive Date: 20041004
  Receipt Date: 20040930
  Transmission Date: 20050328
  Serious: Yes (Other)
  Sender: FDA-Public Use
  Company Number: PHNU2004DE03384

PATIENT
  Age: 83 Year
  Sex: Female

DRUGS (1)
  1. HYDERGINE [Suspect]
     Indication: MIGRAINE PROPHYLAXIS
     Dosage: 1 DF, QD

REACTIONS (1)
  - HYPERTENSION [None]
